FAERS Safety Report 13158847 (Version 2)
Quarter: 2017Q1

REPORT INFORMATION
  Report Type: Spontaneous
  Country: JP (occurrence: JP)
  Receive Date: 20170127
  Receipt Date: 20170227
  Transmission Date: 20170428
  Serious: Yes (Death, Other)
  Sender: FDA-Public Use
  Company Number: JP-TEVA-732766ISR

PATIENT
  Age: 48 Year
  Sex: Female
  Weight: 51 kg

DRUGS (6)
  1. CARBOPLATIN. [Suspect]
     Active Substance: CARBOPLATIN
     Indication: NEUROENDOCRINE CARCINOMA
     Dosage: 400 MG (AUC 5; DAY 1)
     Route: 065
  2. PREDNISOLONE. [Suspect]
     Active Substance: PREDNISOLONE
     Indication: AUTOIMMUNE HAEMOLYTIC ANAEMIA
     Dosage: 30 MG/DAY; LATER INCREASED TO UNKNOWN DOSE
     Route: 065
  3. CEFMETAZOLE [Concomitant]
     Active Substance: CEFMETAZOLE
     Route: 065
  4. METYRAPONE [Concomitant]
     Active Substance: METYRAPONE
     Route: 065
  5. PREDNISOLONE. [Suspect]
     Active Substance: PREDNISOLONE
     Indication: JUVENILE IDIOPATHIC ARTHRITIS
     Dosage: 30 MG/DAY; LATER INCREASED TO UNKNOWN DOSE
     Route: 065
  6. ETOPOSIDE. [Suspect]
     Active Substance: ETOPOSIDE
     Indication: NEUROENDOCRINE CARCINOMA
     Dosage: 120 MG (80 MG/M2; DAY 1 TO 3)
     Route: 065

REACTIONS (12)
  - Cytomegalovirus infection [Fatal]
  - Condition aggravated [Unknown]
  - Spinal compression fracture [Unknown]
  - Anaemia [Unknown]
  - Oral candidiasis [Unknown]
  - Mycotic endophthalmitis [Fatal]
  - Hypokalaemia [Unknown]
  - Hypertension [Unknown]
  - Aspergillus infection [Fatal]
  - Respiratory disorder [Unknown]
  - Febrile neutropenia [Unknown]
  - Neutropenia [Unknown]
